FAERS Safety Report 4498658-4 (Version None)
Quarter: 2004Q3

REPORT INFORMATION
  Report Type: 
  Country: None (occurrence: None)
  Receive Date: 20040927
  Receipt Date: 20040615
  Transmission Date: 20050211
  Serious: No
  Sender: FDA-Public Use
  Company Number: USA040670215

PATIENT
  Age: 14 Year
  Sex: Male
  Weight: 47 kg

DRUGS (1)
  1. STRATTERA [Suspect]
     Indication: ATTENTION DEFICIT/HYPERACTIVITY DISORDER
     Dosage: 40 MG DAY
     Dates: start: 20030901, end: 20040609

REACTIONS (4)
  - INCREASED TENDENCY TO BRUISE [None]
  - JOINT SWELLING [None]
  - PALLOR [None]
  - SKIN DISCOLOURATION [None]
